FAERS Safety Report 5467045-4 (Version None)
Quarter: 2007Q3

REPORT INFORMATION
  Report Type: 
  Country: None (occurrence: None)
  Receive Date: 20070925
  Receipt Date: 20070921
  Transmission Date: 20080115
  Serious: Yes (Hospitalization)
  Sender: FDA-Public Use
  Company Number: B0488023A

PATIENT
  Age: 68 Year
  Sex: Male
  Weight: 61 kg

DRUGS (12)
  1. VALTREX [Suspect]
     Dosage: 1000MG THREE TIMES PER DAY
     Route: 048
     Dates: start: 20070913, end: 20070915
  2. ARTIST [Concomitant]
     Route: 048
  3. RENAGEL [Concomitant]
     Route: 048
  4. AMLODIPINE [Concomitant]
     Route: 048
  5. SELBEX [Concomitant]
     Route: 048
  6. MIKELAN [Concomitant]
     Route: 065
  7. FAMOTIDINE [Concomitant]
     Route: 048
  8. CALTAN [Concomitant]
     Route: 048
  9. ALOSENN [Concomitant]
     Route: 048
  10. OLMETEC [Concomitant]
     Route: 048
  11. GATIFLOXACIN [Concomitant]
     Route: 065
  12. ZOVIRAX [Concomitant]
     Route: 031

REACTIONS (5)
  - ALTERED STATE OF CONSCIOUSNESS [None]
  - DELIRIUM [None]
  - DYSARTHRIA [None]
  - MOTOR DYSFUNCTION [None]
  - OVERDOSE [None]
